FAERS Safety Report 12934668 (Version 1)
Quarter: 2016Q4

REPORT INFORMATION
  Report Type: Spontaneous
  Country: US (occurrence: US)
  Receive Date: 20161111
  Receipt Date: 20161111
  Transmission Date: 20170207
  Serious: No
  Sender: FDA-Public Use
  Company Number: US-CELGENEUS-USA-2016112631

PATIENT
  Age: 38 Year
  Sex: Female

DRUGS (1)
  1. OTEZLA [Suspect]
     Active Substance: APREMILAST
     Indication: PSORIASIS
     Dosage: TITRATION PACK
     Route: 048
     Dates: start: 20161028

REACTIONS (4)
  - Decreased appetite [Recovering/Resolving]
  - Nausea [Recovering/Resolving]
  - Headache [Recovering/Resolving]
  - Malaise [Recovering/Resolving]

NARRATIVE: CASE EVENT DATE: 20161029
